FAERS Safety Report 10235980 (Version 1)
Quarter: 2014Q2

REPORT INFORMATION
  Report Type: Spontaneous
  Country: IT (occurrence: IT)
  Receive Date: 20140613
  Receipt Date: 20140613
  Transmission Date: 20141212
  Serious: Yes (Hospitalization)
  Sender: FDA-Public Use
  Company Number: IT-ASTRAZENECA-2014SE39908

PATIENT
  Age: 17950 Day
  Sex: Male

DRUGS (5)
  1. CRESTOR [Suspect]
     Indication: HYPERCHOLESTEROLAEMIA
     Route: 048
     Dates: start: 20140329, end: 20140410
  2. LANSOPRAZOLE [Concomitant]
     Dosage: TABLETS
  3. UBIDECARENONE [Concomitant]
  4. CARDIOASPIRIN [Concomitant]
     Dosage: 100 MG GASTRO-RESISTANT TABLETS
     Route: 048
  5. ATORVASTATIN [Concomitant]

REACTIONS (4)
  - Chest pain [Unknown]
  - Blood creatine phosphokinase increased [Unknown]
  - Myalgia [Unknown]
  - Rhabdomyolysis [Unknown]
